FAERS Safety Report 9363946 (Version 1)
Quarter: 2013Q2

REPORT INFORMATION
  Report Type: Spontaneous
  Country: CH (occurrence: CH)
  Receive Date: 20130624
  Receipt Date: 20130624
  Transmission Date: 20140414
  Serious: Yes (Life-Threatening, Hospitalization)
  Sender: FDA-Public Use
  Company Number: CH-NOVOPROD-380747

PATIENT
  Sex: Male

DRUGS (17)
  1. NOVORAPID FLEXPEN [Suspect]
     Indication: TYPE 2 DIABETES MELLITUS
     Dates: start: 2007
  2. CEFEPIME ORPHA [Suspect]
     Indication: SEPSIS
     Route: 042
     Dates: start: 20130531, end: 20130603
  3. CLEXANE [Suspect]
     Indication: THROMBOSIS PROPHYLAXIS
     Dosage: 80 MG, QD
     Route: 058
     Dates: start: 20130529, end: 20130531
  4. DAFALGAN [Suspect]
     Indication: PAIN
     Dosage: 1 G, QID
     Route: 048
     Dates: start: 20130510, end: 20130517
  5. DIFLUCAN [Suspect]
     Indication: FUNGAL INFECTION
     Dosage: 200 MG, QD
     Route: 042
     Dates: start: 20130522, end: 20130530
  6. DUROGESIC [Suspect]
     Indication: PAIN
     Dosage: 25UG/H EVERY 72 HOURS
     Route: 062
     Dates: start: 20130510
  7. FENTANYL JANSSEN [Suspect]
     Indication: PAIN
     Route: 042
     Dates: start: 20130510
  8. HEPARIN [Suspect]
     Indication: THROMBOSIS PROPHYLAXIS
     Route: 042
     Dates: start: 20130517
  9. LASIX /00032601/ [Suspect]
     Indication: RENAL FAILURE
     Route: 042
     Dates: start: 20130511
  10. METRONIDAZOL /00012501/ [Suspect]
     Indication: INFECTION
     Route: 042
     Dates: start: 20130531, end: 20130603
  11. NOVALGIN /00169801/ [Suspect]
     Indication: PAIN
     Route: 042
     Dates: start: 20130526, end: 20130530
  12. PANTOZOL /01263204/ [Suspect]
     Indication: THERAPEUTIC PROCEDURE
     Dosage: STOP AT 10-MAY-2013,  COINTINUING ON 18-MAY-2013, NOW ONGOING
     Route: 042
     Dates: start: 20130506
  13. PERFALGAN [Suspect]
     Indication: PAIN
     Route: 042
     Dates: start: 20130518, end: 20130525
  14. PRIMPERAN [Suspect]
     Indication: NAUSEA
     Route: 042
     Dates: start: 20130505
  15. SOLDACTONE [Suspect]
     Indication: OEDEMA
     Route: 042
     Dates: start: 20130518, end: 20130527
  16. TAZOBAC [Suspect]
     Indication: SEPSIS
     Route: 042
     Dates: start: 20130511, end: 20130531
  17. VANCOCIN [Suspect]
     Indication: COLITIS
     Route: 042
     Dates: start: 20130519, end: 20130524

REACTIONS (3)
  - Agranulocytosis [Not Recovered/Not Resolved]
  - Leukopenia [Not Recovered/Not Resolved]
  - Monocytopenia [Not Recovered/Not Resolved]
